FAERS Safety Report 23018719 (Version 2)
Quarter: 2023Q4

REPORT INFORMATION
  Report Type: Spontaneous
  Country: US (occurrence: US)
  Receive Date: 20231003
  Receipt Date: 20231006
  Transmission Date: 20240110
  Serious: No
  Sender: FDA-Public Use
  Company Number: US-AMGEN-USASP2023175001

PATIENT
  Age: 30 Year
  Sex: Female

DRUGS (1)
  1. AIMOVIG [Suspect]
     Active Substance: ERENUMAB-AOOE
     Indication: Migraine
     Dosage: 70 MILLIGRAM, QMO
     Route: 058

REACTIONS (7)
  - Incorrect dose administered [Unknown]
  - Accidental exposure to product [Unknown]
  - Wrong technique in product usage process [Unknown]
  - Product administered at inappropriate site [Unknown]
  - Incorrect disposal of product [Unknown]
  - Injection site haemorrhage [Unknown]
  - Product communication issue [Unknown]

NARRATIVE: CASE EVENT DATE: 20230929
